FAERS Safety Report 10431223 (Version 5)
Quarter: 2015Q2

REPORT INFORMATION
  Report Type: Spontaneous
  Country: US (occurrence: US)
  Receive Date: 20140904
  Receipt Date: 20150410
  Transmission Date: 20150821
  Serious: Yes (Hospitalization, Disabling, Other)
  Sender: FDA-Public Use
  Company Number: US-009507513-1408USA015026

PATIENT
  Sex: Female
  Weight: 58.96 kg

DRUGS (2)
  1. ALENDRONATE SODIUM. [Suspect]
     Active Substance: ALENDRONATE SODIUM
     Indication: OSTEOPOROSIS
     Dosage: 70 MG, QW
     Route: 048
     Dates: start: 20080409, end: 20110615
  2. FOSAMAX [Suspect]
     Active Substance: ALENDRONATE SODIUM
     Indication: OSTEOPOROSIS
     Dosage: 70 MG, QW
     Route: 048
     Dates: start: 20010213, end: 20080409

REACTIONS (16)
  - Hypotension [Unknown]
  - Iron deficiency anaemia [Unknown]
  - Post procedural oedema [Unknown]
  - Hyperglycaemia [Unknown]
  - Rash [Unknown]
  - Arthralgia [Unknown]
  - Intramedullary rod insertion [Unknown]
  - Femur fracture [Not Recovered/Not Resolved]
  - Adverse event [Unknown]
  - Hypercholesterolaemia [Unknown]
  - Intramedullary rod insertion [Unknown]
  - Fracture debridement [Recovering/Resolving]
  - Femur fracture [Recovered/Resolved]
  - Low turnover osteopathy [Not Recovered/Not Resolved]
  - Haemorrhagic anaemia [Recovering/Resolving]
  - Hypertension [Unknown]

NARRATIVE: CASE EVENT DATE: 20051229
